FAERS Safety Report 25114082 (Version 2)
Quarter: 2025Q2

REPORT INFORMATION
  Report Type: Spontaneous
  Country: IN (occurrence: IN)
  Receive Date: 20250324
  Receipt Date: 20250530
  Transmission Date: 20250717
  Serious: Yes (Death)
  Sender: IPSEN BIOPHARMACEUTICALS, INC.
  Company Number: IN-SERVIER-S25000645

PATIENT
  Age: 53 Year
  Sex: Male

DRUGS (7)
  1. ONIVYDE [Suspect]
     Active Substance: IRINOTECAN HYDROCHLORIDE
     Indication: Product used for unknown indication
     Route: 065
  2. ONIVYDE [Suspect]
     Active Substance: IRINOTECAN HYDROCHLORIDE
     Route: 065
     Dates: start: 20250116
  3. PEGASTA [Concomitant]
     Indication: Product used for unknown indication
  4. CARIPILL [Concomitant]
     Indication: Product used for unknown indication
  5. GRANISET [Concomitant]
     Indication: Product used for unknown indication
  6. PAN [Concomitant]
     Indication: Product used for unknown indication
  7. ANXIT [Concomitant]
     Indication: Product used for unknown indication

REACTIONS (3)
  - Full blood count decreased [Fatal]
  - Jaundice [Fatal]
  - Diarrhoea [Recovered/Resolved]

NARRATIVE: CASE EVENT DATE: 20250113
